FAERS Safety Report 7654598-0 (Version None)
Quarter: 2011Q3

REPORT INFORMATION
  Report Type: 
  Country: None (occurrence: None)
  Receive Date: 20110803
  Receipt Date: 20110725
  Transmission Date: 20111222
  Serious: Yes (Other)
  Sender: FDA-Public Use
  Company Number: US-ASTRAZENECA-2011SE44583

PATIENT
  Age: 786 Month
  Sex: Female

DRUGS (5)
  1. PROPANOLOL HCL [Concomitant]
  2. AMANTADINE HCL [Concomitant]
  3. FLUPHENAZINE HCL [Concomitant]
     Route: 048
  4. SEROQUEL [Suspect]
     Indication: SCHIZOAFFECTIVE DISORDER
     Route: 048
  5. DEPAKOTE FR [Concomitant]
     Route: 048

REACTIONS (7)
  - FALL [None]
  - WRIST FRACTURE [None]
  - LIMB INJURY [None]
  - PSYCHIATRIC SYMPTOM [None]
  - DRUG DOSE OMISSION [None]
  - WOUND INFECTION [None]
  - IMPAIRED SELF-CARE [None]
